FAERS Safety Report 12445400 (Version 1)
Quarter: 2016Q2

REPORT INFORMATION
  Report Type: Other
  Country: NL (occurrence: NL)
  Receive Date: 20160608
  Receipt Date: 20160608
  Transmission Date: 20160815
  Serious: No
  Sender: FDA-Public Use
  Company Number: NL-LUPIN PHARMACEUTICALS INC.-2016-02129

PATIENT
  Age: 14 Year
  Sex: Male

DRUGS (4)
  1. FLUTICASONE/SALMETEROL [Concomitant]
     Active Substance: FLUTICASONE PROPIONATE\SALMETEROL XINAFOATE
     Indication: PRODUCT USED FOR UNKNOWN INDICATION
     Dosage: 100/50 MICROG
  2. FEXOFENADINE [Suspect]
     Active Substance: FEXOFENADINE\FEXOFENADINE HYDROCHLORIDE
     Indication: HYPERSENSITIVITY
     Route: 065
  3. FLUTICASONE [Concomitant]
     Active Substance: FLUTICASONE\FLUTICASONE PROPIONATE
     Indication: PRODUCT USED FOR UNKNOWN INDICATION
     Route: 045
  4. AZITHROMYCIN ANHYDROUS. [Suspect]
     Active Substance: AZITHROMYCIN ANHYDROUS
     Indication: RESPIRATORY TRACT INFECTION
     Route: 065

REACTIONS (1)
  - Tachycardia [Unknown]
